FAERS Safety Report 8862634 (Version 10)
Quarter: 2015Q1

REPORT INFORMATION
  Report Type: Spontaneous
  Country: US (occurrence: US)
  Receive Date: 20121026
  Receipt Date: 20150210
  Transmission Date: 20150721
  Serious: Yes (Hospitalization, Other)
  Sender: FDA-Public Use
  Company Number: US-009507513-1210USA005990

PATIENT
  Sex: Female
  Weight: 67.57 kg

DRUGS (3)
  1. FOSAMAX [Suspect]
     Active Substance: ALENDRONATE SODIUM
     Indication: BONE DISORDER
  2. FOSAMAX [Suspect]
     Active Substance: ALENDRONATE SODIUM
     Indication: OSTEOPENIA
     Dosage: UNK
     Route: 048
     Dates: start: 2001, end: 200812
  3. FOSAMAX [Suspect]
     Active Substance: ALENDRONATE SODIUM
     Indication: OSTEOPOROSIS
     Dosage: 70 MG, QW
     Route: 048
     Dates: start: 200512, end: 200712

REACTIONS (41)
  - Polyneuropathy [Unknown]
  - Pneumonia [Unknown]
  - Hypokalaemia [Unknown]
  - Hyperhidrosis [Unknown]
  - Hypercholesterolaemia [Unknown]
  - Peripheral swelling [Unknown]
  - Hypertonic bladder [Unknown]
  - Carotid bruit [Unknown]
  - Alopecia [Unknown]
  - Intramedullary rod insertion [Unknown]
  - Suicide attempt [Unknown]
  - Overdose [Unknown]
  - Muscular weakness [Unknown]
  - Overdose [Unknown]
  - Fatigue [Unknown]
  - Dyspepsia [Unknown]
  - Femur fracture [Unknown]
  - Type 2 diabetes mellitus [Unknown]
  - Tooth fracture [Unknown]
  - Depression [Unknown]
  - Blood pressure increased [Unknown]
  - Femur fracture [Recovered/Resolved]
  - Suicide attempt [Unknown]
  - Bipolar disorder [Unknown]
  - Anxiety [Unknown]
  - Kyphosis [Unknown]
  - Insomnia [Unknown]
  - Procedural pain [Not Recovered/Not Resolved]
  - Back pain [Unknown]
  - Open reduction of fracture [Unknown]
  - Low turnover osteopathy [Unknown]
  - Fall [Unknown]
  - Humerus fracture [Unknown]
  - Fall [Unknown]
  - Iliac bruit [Unknown]
  - Major depression [Unknown]
  - Tooth extraction [Unknown]
  - Fall [Unknown]
  - Adverse drug reaction [Unknown]
  - Femoral bruit [Unknown]
  - Muscle spasms [Unknown]

NARRATIVE: CASE EVENT DATE: 20031120
